FAERS Safety Report 4796114-7 (Version None)
Quarter: 2005Q4

REPORT INFORMATION
  Report Type: 
  Country: None (occurrence: None)
  Receive Date: 20051007
  Receipt Date: 20050928
  Transmission Date: 20060501
  Serious: Yes (Disabling)
  Sender: FDA-Public Use
  Company Number: HQWYE739329SEP05

PATIENT
  Age: 44 Year
  Sex: Male

DRUGS (2)
  1. EFFEXOR XR [Suspect]
     Dosage: I REDUCED THE AMOUNT BY APROX 30 MG UNTIL EFFEXOR XR  WAS GONE
     Dates: start: 20030901, end: 20041201
  2. EFFEXOR XR [Suspect]
     Dosage: I REDUCED THE AMOUNT BY APROX 30 MG UNTIL EFFEXOR XR  WAS GONE
     Dates: start: 20041201

REACTIONS (7)
  - BRAIN DAMAGE [None]
  - CONVULSION [None]
  - DEPRESSION [None]
  - DRUG INEFFECTIVE [None]
  - DRUG WITHDRAWAL SYNDROME [None]
  - ECONOMIC PROBLEM [None]
  - EMOTIONAL DISORDER [None]
